FAERS Safety Report 14804991 (Version 1)
Quarter: 2018Q2

REPORT INFORMATION
  Report Type: Spontaneous
  Country: FR (occurrence: FR)
  Receive Date: 20180425
  Receipt Date: 20180425
  Transmission Date: 20180711
  Serious: Yes (Hospitalization, Other)
  Sender: FDA-Public Use
  Company Number: FR-AUROBINDO-AUR-APL-2018-020845

PATIENT
  Age: 83 Year
  Sex: Male

DRUGS (16)
  1. PANTOPRAZOLE SODIUM. [Suspect]
     Active Substance: PANTOPRAZOLE SODIUM
     Indication: STRESS ULCER
     Dosage: 40 MILLIGRAM, ONCE A DAY
     Route: 042
     Dates: start: 20180322, end: 20180329
  2. MIDAZOLAM [Suspect]
     Active Substance: MIDAZOLAM HYDROCHLORIDE
     Indication: SEDATION
     Dosage: 12 MILLIGRAM
     Route: 042
     Dates: start: 20180322, end: 20180331
  3. ERYTHROCINE                        /00020901/ [Suspect]
     Active Substance: ERYTHROMYCIN
     Indication: PRODUCT USED FOR UNKNOWN INDICATION
     Dosage: 100 MILLIGRAM
     Route: 042
     Dates: start: 20180327, end: 20180329
  4. KETAMINE RENAUDIN [Suspect]
     Active Substance: KETAMINE
     Indication: SEDATION
     Dosage: 300 MILLIGRAM
     Route: 042
     Dates: start: 20180322, end: 20180329
  5. HEPARINE CALCIUM PANPHARMA [Concomitant]
     Indication: THROMBOSIS PROPHYLAXIS
     Dosage: UNK
     Route: 042
     Dates: start: 20180322
  6. ROVAMYCINE                         /00074401/ [Concomitant]
     Active Substance: SPIRAMYCIN
     Indication: PRODUCT USED FOR UNKNOWN INDICATION
     Dosage: 1.5 MUI/8 H
     Route: 042
     Dates: start: 20180322, end: 20180401
  7. PYRIDOXINE [Concomitant]
     Active Substance: PYRIDOXINE
     Indication: HYPOVITAMINOSIS
     Dosage: JUSQU^? 500 MG/J
     Route: 042
     Dates: start: 20180324, end: 20180328
  8. ACETYLCYSTEINE. [Suspect]
     Active Substance: ACETYLCYSTEINE
     Indication: PRODUCT USED FOR UNKNOWN INDICATION
     Dosage: 200 MG/8 PUIS 12 G
     Route: 042
     Dates: start: 20180326, end: 20180329
  9. FLUCORTAC [Suspect]
     Active Substance: FLUDROCORTISONE ACETATE
     Indication: ADRENAL INSUFFICIENCY
     Dosage: 1 DOSAGE FORM
     Route: 048
     Dates: start: 20180323, end: 20180328
  10. NORADRENALINE                      /00127501/ [Suspect]
     Active Substance: NOREPINEPHRINE
     Indication: CARDIOGENIC SHOCK
     Dosage: DE 8 MG ? 32 MG PAR 50 ML
     Route: 042
     Dates: start: 20180322, end: 20180330
  11. HYDROCORTISONE. [Suspect]
     Active Substance: HYDROCORTISONE
     Indication: ADRENAL INSUFFICIENCY
     Dosage: 200 MILLIGRAM
     Route: 042
     Dates: start: 20180322, end: 20180329
  12. CORDARONE [Suspect]
     Active Substance: AMIODARONE HYDROCHLORIDE
     Indication: LEFT VENTRICULAR DYSFUNCTION
     Dosage: 200 MILLIGRAM, ONCE A DAY
     Route: 048
     Dates: start: 20180322, end: 20180329
  13. OFLOXACINE [Suspect]
     Active Substance: OFLOXACIN
     Indication: PRODUCT USED FOR UNKNOWN INDICATION
     Dosage: 200 MILLIGRAM
     Route: 042
     Dates: start: 20180322, end: 20180329
  14. NIMBEX [Suspect]
     Active Substance: CISATRACURIUM BESYLATE
     Indication: SEDATION
     Dosage: 20 MILLIGRAM
     Route: 042
     Dates: start: 20180326, end: 20180328
  15. SUFENTANIL [Suspect]
     Active Substance: SUFENTANIL
     Indication: SEDATION
     Dosage: 30 MICROGRAM
     Route: 042
     Dates: start: 20180322, end: 20180331
  16. THIAMINE. [Concomitant]
     Active Substance: THIAMINE
     Indication: HYPOVITAMINOSIS
     Dosage: JUSQU^? 500 MG/J
     Route: 042
     Dates: start: 20180324, end: 20180328

REACTIONS (1)
  - Hepatitis [Recovering/Resolving]

NARRATIVE: CASE EVENT DATE: 20180327
